FAERS Safety Report 20080485 (Version 1)
Quarter: 2021Q4

REPORT INFORMATION
  Report Type: Spontaneous
  Country: US (occurrence: US)
  Receive Date: 20211117
  Receipt Date: 20211117
  Transmission Date: 20220303
  Serious: No
  Sender: FDA-Public Use
  Company Number: US-GSKCCFUS-Case-01218260_AE-71370

PATIENT
  Sex: Female

DRUGS (2)
  1. NUCALA [Suspect]
     Active Substance: MEPOLIZUMAB
     Indication: Asthma
     Dosage: UNK, CYC
     Route: 058
     Dates: start: 20211021
  2. COVID19 VACCINE [Concomitant]
     Indication: COVID-19
     Dosage: UNK

REACTIONS (4)
  - Cough [Not Recovered/Not Resolved]
  - Pruritus [Recovered/Resolved]
  - Asthenopia [Recovered/Resolved]
  - Lip disorder [Recovered/Resolved]
